FAERS Safety Report 9633473 (Version 1)
Quarter: 2013Q4

REPORT INFORMATION
  Report Type: Spontaneous
  Country: JP (occurrence: JP)
  Receive Date: 20131021
  Receipt Date: 20131021
  Transmission Date: 20140711
  Serious: Yes (Other)
  Sender: FDA-Public Use
  Company Number: JP-OTSUKA-JP-2013-14495

PATIENT
  Sex: 0

DRUGS (4)
  1. SAMSCA [Suspect]
     Route: 048
  2. SELARA [Concomitant]
     Route: 048
  3. DIART [Concomitant]
     Route: 048
  4. NATRIX [Concomitant]
     Route: 048

REACTIONS (1)
  - Blood sodium decreased [Unknown]
